FAERS Safety Report 7889171-2 (Version None)
Quarter: 2011Q4

REPORT INFORMATION
  Report Type: 
  Country: None (occurrence: None)
  Receive Date: 20111103
  Receipt Date: 20111026
  Transmission Date: 20120403
  Serious: Yes (Hospitalization)
  Sender: FDA-Public Use
  Company Number: IT-PFIZER INC-2011266162

PATIENT
  Age: 27 Year
  Sex: Female

DRUGS (3)
  1. RAMIPRIL [Suspect]
     Indication: SELF INJURIOUS BEHAVIOUR
     Dosage: 70 MG, TOTAL
     Route: 048
     Dates: start: 20110302, end: 20110302
  2. VALPROMIDE [Suspect]
     Indication: SELF INJURIOUS BEHAVIOUR
     Dosage: 3 G, TOTAL
     Route: 048
     Dates: start: 20110302, end: 20110302
  3. NEBIVOLOL [Suspect]
     Indication: SELF INJURIOUS BEHAVIOUR
     Dosage: 140 MG, TOTAL
     Route: 048
     Dates: start: 20110302, end: 20110302

REACTIONS (3)
  - VOMITING [None]
  - SINUS ARRHYTHMIA [None]
  - MULTIPLE DRUG OVERDOSE INTENTIONAL [None]
